FAERS Safety Report 5115808-7 (Version None)
Quarter: 2006Q3

REPORT INFORMATION
  Report Type: 
  Country: None (occurrence: None)
  Receive Date: 20060927
  Receipt Date: 20060922
  Transmission Date: 20061208
  Serious: Yes (Death, Hospitalization)
  Sender: FDA-Public Use
  Company Number: 2006AC01726

PATIENT
  Age: 63 Year
  Sex: Female

DRUGS (6)
  1. SEROQUEL [Suspect]
     Indication: PSYCHOTIC DISORDER
     Route: 048
     Dates: start: 20060701, end: 20060807
  2. ARICEPT [Concomitant]
     Indication: PARKINSON'S DISEASE
     Route: 048
     Dates: start: 20060101, end: 20060807
  3. REQUIP [Concomitant]
     Indication: PARKINSON'S DISEASE
     Dates: end: 20060807
  4. SINEMET [Concomitant]
     Indication: PARKINSON'S DISEASE
     Dosage: 25/250 MG
     Dates: end: 20060807
  5. KONAKION [Concomitant]
     Indication: PARKINSON'S DISEASE
     Dates: end: 20060807
  6. LANTUS [Concomitant]
     Indication: DIABETES MELLITUS
     Dosage: LONG TERM

REACTIONS (6)
  - CONVULSION [None]
  - HYPERTHERMIA [None]
  - NEUROLEPTIC MALIGNANT SYNDROME [None]
  - RENAL FAILURE [None]
  - RHABDOMYOLYSIS [None]
  - SHOCK [None]
